FAERS Safety Report 5334753-5 (Version None)
Quarter: 2007Q2

REPORT INFORMATION
  Report Type: 
  Country: None (occurrence: None)
  Receive Date: 20070525
  Receipt Date: 20070515
  Transmission Date: 20071010
  Serious: Yes (Other)
  Sender: FDA-Public Use
  Company Number: ES-ABBOTT-07P-144-0366583-00

PATIENT
  Sex: Female

DRUGS (5)
  1. DEPAKENE [Suspect]
     Indication: EPILEPSY
     Route: 048
     Dates: start: 20011201
  2. DEPAKENE [Suspect]
  3. DEPAKENE [Suspect]
  4. AMOXI-CLAVULANICO [Suspect]
     Indication: URINARY TRACT INFECTION
     Route: 048
     Dates: start: 20070409, end: 20070417
  5. IBUPROFEN [Concomitant]
     Indication: PYREXIA
     Route: 048
     Dates: start: 20070409, end: 20070417

REACTIONS (4)
  - CONVULSION [None]
  - DIARRHOEA [None]
  - DRUG INEFFECTIVE [None]
  - URINARY TRACT INFECTION [None]
